FAERS Safety Report 8935158 (Version 1)
Quarter: 2012Q4

REPORT INFORMATION
  Report Type: 
  Country: US (occurrence: US)
  Receive Date: 20121129
  Receipt Date: 20121129
  Transmission Date: 20130627
  Serious: No
  Sender: FDA-Public Use
  Company Number: US-ASTRAZENECA-2012SE87081

PATIENT
  Age: 85 Year
  Sex: Female

DRUGS (9)
  1. NEXIUM [Suspect]
     Indication: NAUSEA
     Route: 048
     Dates: start: 20121113
  2. NEXIUM [Suspect]
     Indication: ABDOMINAL DISCOMFORT
     Route: 048
     Dates: start: 20121113
  3. ATENOLOL [Suspect]
     Route: 048
  4. LIPITOR [Concomitant]
     Indication: BLOOD CHOLESTEROL ABNORMAL
  5. METHOTREXATE [Concomitant]
  6. EYE DROPS [Concomitant]
     Indication: GLAUCOMA
  7. MULTIVITAMIN [Concomitant]
     Indication: SUPPLEMENTATION THERAPY
  8. VITAMIN D [Concomitant]
     Indication: SUPPLEMENTATION THERAPY
  9. CALCIUM [Concomitant]
     Indication: SUPPLEMENTATION THERAPY

REACTIONS (5)
  - Feeling abnormal [Recovering/Resolving]
  - Gastrointestinal sounds abnormal [Recovering/Resolving]
  - Abdominal discomfort [Recovering/Resolving]
  - Nausea [Recovering/Resolving]
  - Off label use [Unknown]
